FAERS Safety Report 25914710 (Version 1)
Quarter: 2025Q4

REPORT INFORMATION
  Report Type: Spontaneous
  Country: VN (occurrence: VN)
  Receive Date: 20251013
  Receipt Date: 20251013
  Transmission Date: 20260117
  Serious: Yes (Other)
  Sender: NOVARTIS
  Company Number: VN-002147023-NVSC2025VN147566

PATIENT

DRUGS (2)
  1. CYCLOSPORINE [Suspect]
     Active Substance: CYCLOSPORINE
     Indication: Large granular lymphocytosis
     Dosage: UNK, 3-5MG/KG/DAY
     Route: 065
  2. CYCLOSPORINE [Suspect]
     Active Substance: CYCLOSPORINE
     Dosage: UNK (LOW DOSE)
     Route: 065

REACTIONS (2)
  - Blood bilirubin increased [Recovering/Resolving]
  - Off label use [Recovering/Resolving]
